FAERS Safety Report 20481956 (Version 1)
Quarter: 2022Q1

REPORT INFORMATION
  Report Type: Spontaneous
  Country: AU (occurrence: AU)
  Receive Date: 20220216
  Receipt Date: 20220216
  Transmission Date: 20220424
  Serious: Yes (Other)
  Sender: FDA-Public Use
  Company Number: AU-TEVA-2022-AU-2008377

PATIENT
  Age: 84 Year
  Sex: Male

DRUGS (6)
  1. ACITRETIN [Suspect]
     Active Substance: ACITRETIN
     Route: 065
  2. DIGOXIN [Concomitant]
     Active Substance: DIGOXIN
  3. ELTROMBOPAG [Concomitant]
     Active Substance: ELTROMBOPAG
  4. FUROSEMIDE [Concomitant]
     Active Substance: FUROSEMIDE
  5. METOPROLOL [Concomitant]
     Active Substance: METOPROLOL
  6. PREDNISOLONE [Concomitant]
     Active Substance: PREDNISOLONE

REACTIONS (5)
  - Decreased appetite [Unknown]
  - Dysphagia [Unknown]
  - Respiratory distress [Unknown]
  - Thrombocytopenia [Recovered/Resolved]
  - Weight decreased [Unknown]

NARRATIVE: CASE EVENT DATE: 20200701
